FAERS Safety Report 6933462-6 (Version None)
Quarter: 2010Q3

REPORT INFORMATION
  Report Type: 
  Country: None (occurrence: None)
  Receive Date: 20100820
  Receipt Date: 20100812
  Transmission Date: 20110219
  Serious: Yes (Hospitalization)
  Sender: FDA-Public Use
  Company Number: AU-PFIZER INC-2010101225

PATIENT
  Sex: Male

DRUGS (3)
  1. ZELDOX [Suspect]
     Dosage: 40 MG, (IN THE FIRST WEEK)
  2. ZELDOX [Suspect]
     Dosage: 60 MG, (NEXT THREE WEEKS)
  3. ZELDOX [Suspect]
     Dosage: 20 MG, UNK

REACTIONS (3)
  - MUSCLE SPASMS [None]
  - PALPITATIONS [None]
  - RASH [None]
